FAERS Safety Report 5661980-X (Version None)
Quarter: 2008Q1

REPORT INFORMATION
  Report Type: 
  Country: None (occurrence: None)
  Receive Date: 20080312
  Receipt Date: 20080306
  Transmission Date: 20080703
  Serious: Yes (Hospitalization, Other)
  Sender: FDA-Public Use
  Company Number: US-PURDUE-USA_2008_0031480

PATIENT
  Sex: Female

DRUGS (2)
  1. OXYCONTIN [Suspect]
     Indication: COMPLEX REGIONAL PAIN SYNDROME
     Dosage: 120 MG, TID
     Dates: end: 20080111
  2. AMBIEN [Concomitant]

REACTIONS (5)
  - DRUG EFFECT DECREASED [None]
  - HOSPITALISATION [None]
  - HUMERUS FRACTURE [None]
  - PAIN [None]
  - UPPER LIMB FRACTURE [None]
